FAERS Safety Report 16467331 (Version 1)
Quarter: 2019Q2

REPORT INFORMATION
  Report Type: Spontaneous
  Country: CO (occurrence: CO)
  Receive Date: 20190624
  Receipt Date: 20190624
  Transmission Date: 20190711
  Serious: Yes (Hospitalization, Other)
  Sender: FDA-Public Use
  Company Number: CO-ROCHE-2335920

PATIENT
  Sex: Male

DRUGS (4)
  1. MABTHERA [Suspect]
     Active Substance: RITUXIMAB
     Indication: OPTIC NEUROPATHY
     Dosage: DOSE UNKNOWN
     Route: 065
     Dates: start: 2014, end: 2014
  2. MABTHERA [Suspect]
     Active Substance: RITUXIMAB
     Indication: OFF LABEL USE
  3. ACTEMRA [Suspect]
     Active Substance: TOCILIZUMAB
     Indication: OFF LABEL USE
  4. ACTEMRA [Suspect]
     Active Substance: TOCILIZUMAB
     Indication: OPTIC NEUROPATHY
     Dosage: DOSE UNKNOWN? RECEIVED RECENT DOSE OF TOCILIZUMAB WAS ON 27/APR/2019,
     Route: 042
     Dates: start: 2014

REACTIONS (14)
  - Intentional product use issue [Unknown]
  - Product administration error [Unknown]
  - Gait disturbance [Not Recovered/Not Resolved]
  - Visual acuity reduced [Recovered/Resolved]
  - Thrombosis [Recovered/Resolved]
  - Abscess [Recovered/Resolved]
  - Off label use [Unknown]
  - Osteoporosis [Recovering/Resolving]
  - Cataract [Recovering/Resolving]
  - Optic neuropathy [Not Recovered/Not Resolved]
  - Arrhythmia [Recovered/Resolved]
  - Infection [Recovered/Resolved]
  - Lung perforation [Recovered/Resolved]
  - Cardiac disorder [Recovered/Resolved]
